FAERS Safety Report 16074482 (Version 4)
Quarter: 2019Q4

REPORT INFORMATION
  Report Type: Spontaneous
  Country: US (occurrence: US)
  Receive Date: 20190314
  Receipt Date: 20191111
  Transmission Date: 20200122
  Serious: Yes (Other)
  Sender: FDA-Public Use
  Company Number: US-ACTELION-A-US2019-187729

PATIENT
  Sex: Female
  Weight: 77.55 kg

DRUGS (5)
  1. PEPCID [Suspect]
     Active Substance: FAMOTIDINE
     Indication: PRODUCT USED FOR UNKNOWN INDICATION
     Route: 065
  2. OPSUMIT [Suspect]
     Active Substance: MACITENTAN
     Indication: PULMONARY ARTERIAL HYPERTENSION
     Dosage: 10 MG, QD
     Route: 048
  3. TYVASO [Concomitant]
     Active Substance: TREPROSTINIL
  4. TADALAFIL. [Concomitant]
     Active Substance: TADALAFIL
  5. CORICIDIN HBP CHEST CONGESTION AND COUGH [Suspect]
     Active Substance: DEXTROMETHORPHAN HYDROBROMIDE\GUAIFENESIN
     Indication: PRODUCT USED FOR UNKNOWN INDICATION
     Dosage: UNK, SINGLE
     Route: 065

REACTIONS (8)
  - Flushing [Unknown]
  - Gastrooesophageal reflux disease [Unknown]
  - Blood pressure decreased [Unknown]
  - Glomerular filtration rate decreased [Unknown]
  - Rash [Unknown]
  - Tubulointerstitial nephritis [Unknown]
  - Gastritis [Unknown]
  - Renal disorder [Unknown]
